FAERS Safety Report 5640969-0 (Version None)
Quarter: 2008Q1

REPORT INFORMATION
  Report Type: 
  Country: None (occurrence: None)
  Receive Date: 20080225
  Receipt Date: 20080211
  Transmission Date: 20080703
  Serious: Yes (Hospitalization)
  Sender: FDA-Public Use
  Company Number: B0509124A

PATIENT
  Age: 61 Year
  Sex: Male

DRUGS (1)
  1. AMOXICILLIN + CLAVULANATE POTASSIUM [Suspect]
     Indication: PHARYNGOLARYNGEAL PAIN
     Dosage: 1000 MG/ SINGLE DOSE / ORAL
     Route: 048

REACTIONS (7)
  - ACUTE CORONARY SYNDROME [None]
  - ANGINA PECTORIS [None]
  - CORONARY ARTERY RESTENOSIS [None]
  - DRUG HYPERSENSITIVITY [None]
  - DYSPNOEA [None]
  - MYOCARDIAL INFARCTION [None]
  - RASH PRURITIC [None]
